FAERS Safety Report 7673522-8 (Version None)
Quarter: 2011Q3

REPORT INFORMATION
  Report Type: 
  Country: None (occurrence: None)
  Receive Date: 20110804
  Receipt Date: 20110722
  Transmission Date: 20111222
  Serious: Yes (Disabling)
  Sender: FDA-Public Use
  Company Number: 018728

PATIENT
  Age: 81 Year
  Sex: Female

DRUGS (5)
  1. LEVOFLOXACIN [Concomitant]
  2. PEGAPTANIB SODIUM (PEGAPTANIB SODIUM) UNKNOWN [Suspect]
     Indication: CHOROIDAL NEOVASCULARISATION
     Dosage: 0.3 MG, UNK, INTRAOCULAR
     Dates: start: 20101116, end: 20101116
  3. PEGAPTANIB SODIUM (PEGAPTANIB SODIUM) UNKNOWN [Suspect]
     Indication: AGE-RELATED MACULAR DEGENERATION
     Dosage: 0.3 MG, UNK, INTRAOCULAR
     Dates: start: 20101116, end: 20101116
  4. PEGAPTANIB SODIUM (PEGAPTANIB SODIUM) UNKNOWN [Suspect]
     Indication: CHOROIDAL NEOVASCULARISATION
     Dosage: 0.3 MG, UNK, INTRAOCULAR
     Dates: start: 20101228, end: 20101228
  5. PEGAPTANIB SODIUM (PEGAPTANIB SODIUM) UNKNOWN [Suspect]
     Indication: AGE-RELATED MACULAR DEGENERATION
     Dosage: 0.3 MG, UNK, INTRAOCULAR
     Dates: start: 20101228, end: 20101228

REACTIONS (1)
  - MACULAR HOLE [None]
